FAERS Safety Report 9606469 (Version 1)
Quarter: 2013Q4

REPORT INFORMATION
  Report Type: Spontaneous
  Country: US (occurrence: US)
  Receive Date: 20131008
  Receipt Date: 20131008
  Transmission Date: 20140711
  Serious: No
  Sender: FDA-Public Use
  Company Number: US-AMGEN-USASP2013055881

PATIENT
  Age: 70 Year
  Sex: Female
  Weight: 64.4 kg

DRUGS (4)
  1. PROLIA [Suspect]
     Indication: OSTEOPOROSIS POSTMENOPAUSAL
     Dosage: UNK
     Route: 065
     Dates: start: 201208
  2. LIPITOR [Concomitant]
  3. ENALAPRIL [Concomitant]
  4. VITAMINS                           /00067501/ [Concomitant]

REACTIONS (1)
  - Weight increased [Unknown]
